FAERS Safety Report 23148797 (Version 2)
Quarter: 2023Q4

REPORT INFORMATION
  Report Type: Spontaneous
  Country: US (occurrence: US)
  Receive Date: 20231106
  Receipt Date: 20231116
  Transmission Date: 20240109
  Serious: No
  Sender: FDA-Public Use
  Company Number: US-AMGEN-USASP2023195156

PATIENT
  Age: 55 Year
  Sex: Female

DRUGS (1)
  1. REPATHA [Suspect]
     Active Substance: EVOLOCUMAB
     Indication: Blood cholesterol increased
     Dosage: 420 MILLIGRAM, QMO
     Route: 058

REACTIONS (1)
  - Accidental exposure to product [Unknown]

NARRATIVE: CASE EVENT DATE: 20231031
